FAERS Safety Report 13456518 (Version 1)
Quarter: 2017Q2

REPORT INFORMATION
  Report Type: Spontaneous
  Country: CA (occurrence: CA)
  Receive Date: 20170418
  Receipt Date: 20170418
  Transmission Date: 20170830
  Serious: Yes (Other)
  Sender: FDA-Public Use
  Company Number: CA-GILEAD-2017-0267406

PATIENT
  Age: 53 Year
  Sex: Male

DRUGS (4)
  1. ABACAVIR. [Concomitant]
     Active Substance: ABACAVIR
  2. RALTEGRAVIR. [Concomitant]
     Active Substance: RALTEGRAVIR
  3. HARVONI [Suspect]
     Active Substance: LEDIPASVIR\SOFOSBUVIR
     Indication: CHRONIC HEPATITIS C
     Dosage: UNK
     Route: 065
  4. LAMIVUDINE. [Concomitant]
     Active Substance: LAMIVUDINE

REACTIONS (1)
  - Basedow^s disease [Unknown]
